FAERS Safety Report 5615636-X (Version None)
Quarter: 2008Q1

REPORT INFORMATION
  Report Type: 
  Country: None (occurrence: None)
  Receive Date: 20080206
  Receipt Date: 20080129
  Transmission Date: 20080703
  Serious: Yes (Hospitalization)
  Sender: FDA-Public Use
  Company Number: B0505011A

PATIENT
  Age: 51 Year
  Sex: Male

DRUGS (2)
  1. VALTREX [Suspect]
     Indication: HERPES ZOSTER
     Dosage: 1MG THREE TIMES PER DAY
     Route: 048
     Dates: start: 20050701, end: 20050901
  2. TACROLIMUS [Suspect]
     Indication: LIVER TRANSPLANT
     Dosage: 3MG TWICE PER DAY
     Route: 048

REACTIONS (2)
  - LIVER TRANSPLANT [None]
  - TRANSAMINASES INCREASED [None]
